FAERS Safety Report 17041677 (Version 1)
Quarter: 2019Q4

REPORT INFORMATION
  Report Type: Spontaneous
  Country: FR (occurrence: FR)
  Receive Date: 20191118
  Receipt Date: 20191118
  Transmission Date: 20200122
  Serious: Yes (Other)
  Sender: FDA-Public Use
  Company Number: FR-ROCHE-2465012

PATIENT
  Age: 52 Year
  Sex: Female

DRUGS (2)
  1. TRASTUZUMAB EMTANSINE [Suspect]
     Active Substance: ADO-TRASTUZUMAB EMTANSINE
     Indication: HER-2 POSITIVE BREAST CANCER
     Route: 042
  2. TRASTUZUMAB EMTANSINE [Suspect]
     Active Substance: ADO-TRASTUZUMAB EMTANSINE
     Indication: BREAST CANCER

REACTIONS (6)
  - Splenomegaly [Unknown]
  - Portal hypertensive gastropathy [Unknown]
  - Thrombocytopenia [Unknown]
  - Non-cirrhotic portal hypertension [Unknown]
  - Nodular regenerative hyperplasia [Unknown]
  - Cholestasis [Unknown]
